FAERS Safety Report 7315027-X (Version None)
Quarter: 2011Q1

REPORT INFORMATION
  Report Type: 
  Country: None (occurrence: None)
  Receive Date: 20110225
  Receipt Date: 20100401
  Transmission Date: 20110831
  Serious: No
  Sender: FDA-Public Use
  Company Number: US-MYLANLABS-2010S1004169

PATIENT
  Age: 55 Year
  Sex: Female
  Weight: 130.6 kg

DRUGS (3)
  1. XYZAL [Concomitant]
     Route: 048
     Dates: start: 20090316
  2. AMNESTEEM [Suspect]
     Indication: CUTANEOUS AMYLOIDOSIS
     Dosage: DOSED MONDAY-FRIDAY
     Route: 048
     Dates: start: 20100215, end: 20100311
  3. AMNESTEEM [Suspect]
     Route: 048
     Dates: start: 20100215, end: 20100311

REACTIONS (2)
  - CONDITION AGGRAVATED [None]
  - DRUG INTOLERANCE [None]
